FAERS Safety Report 16243703 (Version 3)
Quarter: 2019Q2

REPORT INFORMATION
  Report Type: Spontaneous
  Country: US (occurrence: US)
  Receive Date: 20190426
  Receipt Date: 20190506
  Transmission Date: 20190711
  Serious: Yes (Other)
  Sender: FDA-Public Use
  Company Number: US-PFIZER INC-2019174617

PATIENT
  Age: 82 Year
  Sex: Male
  Weight: 56.3 kg

DRUGS (2)
  1. VORICONAZOLE. [Suspect]
     Active Substance: VORICONAZOLE
     Indication: ORAL CANDIDIASIS
     Dosage: 200 MG, 2X/DAY (5 ML EVERY 12 HRS/TAKE 5 ML EVERY 12 HOURS BY ORAL ROUTE AS DIRECTED FOR 30 DAYS)
     Route: 048
  2. VORICONAZOLE. [Suspect]
     Active Substance: VORICONAZOLE
     Dosage: 5 ML, 2X/DAY (AS DIRECTED FOR 30 DAYS)
     Route: 048
     Dates: start: 20190405

REACTIONS (5)
  - Hallucination, visual [Unknown]
  - Epstein-Barr virus test positive [Unknown]
  - Weight decreased [Not Recovered/Not Resolved]
  - Lymph node pain [Unknown]
  - Nausea [Unknown]
